FAERS Safety Report 24405436 (Version 2)
Quarter: 2025Q2

REPORT INFORMATION
  Report Type: Report from Study
  Country: US (occurrence: US)
  Receive Date: 20241007
  Receipt Date: 20250424
  Transmission Date: 20250716
  Serious: Yes (Hospitalization, Other)
  Sender: TAKEDA
  Company Number: US-TAKEDA-2024TUS064536

PATIENT
  Sex: Female
  Weight: 86 kg

DRUGS (67)
  1. VON WILLEBRAND FACTOR (RECOMBINANT) [Suspect]
     Active Substance: VON WILLEBRAND FACTOR (RECOMBINANT)
     Indication: Von Willebrand^s disease
  2. VON WILLEBRAND FACTOR (RECOMBINANT) [Suspect]
     Active Substance: VON WILLEBRAND FACTOR (RECOMBINANT)
     Dosage: 5000 INTERNATIONAL UNIT, QD
     Dates: start: 20240318
  3. VON WILLEBRAND FACTOR (RECOMBINANT) [Suspect]
     Active Substance: VON WILLEBRAND FACTOR (RECOMBINANT)
     Dosage: 5000 INTERNATIONAL UNIT, QD
     Dates: start: 20240413
  4. VON WILLEBRAND FACTOR (RECOMBINANT) [Suspect]
     Active Substance: VON WILLEBRAND FACTOR (RECOMBINANT)
     Dosage: 8000 INTERNATIONAL UNIT, QD
     Dates: start: 20240413
  5. VON WILLEBRAND FACTOR (RECOMBINANT) [Suspect]
     Active Substance: VON WILLEBRAND FACTOR (RECOMBINANT)
     Dosage: 8000 INTERNATIONAL UNIT, QD
     Dates: start: 20240414
  6. VON WILLEBRAND FACTOR (RECOMBINANT) [Suspect]
     Active Substance: VON WILLEBRAND FACTOR (RECOMBINANT)
     Dosage: 5000 INTERNATIONAL UNIT, QD
     Dates: start: 20240414
  7. VON WILLEBRAND FACTOR (RECOMBINANT) [Suspect]
     Active Substance: VON WILLEBRAND FACTOR (RECOMBINANT)
     Dosage: 5000 INTERNATIONAL UNIT, QD
     Dates: start: 20240415
  8. VON WILLEBRAND FACTOR (RECOMBINANT) [Suspect]
     Active Substance: VON WILLEBRAND FACTOR (RECOMBINANT)
     Dosage: 5000 INTERNATIONAL UNIT, QD
     Dates: start: 20240416
  9. VON WILLEBRAND FACTOR (RECOMBINANT) [Suspect]
     Active Substance: VON WILLEBRAND FACTOR (RECOMBINANT)
     Dosage: 5000 INTERNATIONAL UNIT, QD
     Dates: start: 20240417
  10. VON WILLEBRAND FACTOR (RECOMBINANT) [Suspect]
     Active Substance: VON WILLEBRAND FACTOR (RECOMBINANT)
     Dosage: 5000 INTERNATIONAL UNIT, QD
     Dates: start: 20240418
  11. VON WILLEBRAND FACTOR (RECOMBINANT) [Suspect]
     Active Substance: VON WILLEBRAND FACTOR (RECOMBINANT)
     Dosage: 5000 INTERNATIONAL UNIT, QD
     Dates: start: 20240419
  12. VON WILLEBRAND FACTOR (RECOMBINANT) [Suspect]
     Active Substance: VON WILLEBRAND FACTOR (RECOMBINANT)
     Dosage: 5000 INTERNATIONAL UNIT, QD
     Dates: start: 20240420
  13. VON WILLEBRAND FACTOR (RECOMBINANT) [Suspect]
     Active Substance: VON WILLEBRAND FACTOR (RECOMBINANT)
     Dosage: 8000 INTERNATIONAL UNIT, QD
     Dates: start: 20240420
  14. VON WILLEBRAND FACTOR (RECOMBINANT) [Suspect]
     Active Substance: VON WILLEBRAND FACTOR (RECOMBINANT)
     Dosage: 8000 INTERNATIONAL UNIT, QD
     Dates: start: 20240421
  15. VON WILLEBRAND FACTOR (RECOMBINANT) [Suspect]
     Active Substance: VON WILLEBRAND FACTOR (RECOMBINANT)
     Dosage: 5000 INTERNATIONAL UNIT, QD
     Dates: start: 20240421
  16. VON WILLEBRAND FACTOR (RECOMBINANT) [Suspect]
     Active Substance: VON WILLEBRAND FACTOR (RECOMBINANT)
     Dosage: 5000 INTERNATIONAL UNIT, QD
     Dates: start: 20240422
  17. VON WILLEBRAND FACTOR (RECOMBINANT) [Suspect]
     Active Substance: VON WILLEBRAND FACTOR (RECOMBINANT)
     Dosage: 8000 INTERNATIONAL UNIT, QD
     Dates: start: 20240422
  18. VON WILLEBRAND FACTOR (RECOMBINANT) [Suspect]
     Active Substance: VON WILLEBRAND FACTOR (RECOMBINANT)
     Dosage: 5000 INTERNATIONAL UNIT, QD
     Dates: start: 20240423
  19. VON WILLEBRAND FACTOR (RECOMBINANT) [Suspect]
     Active Substance: VON WILLEBRAND FACTOR (RECOMBINANT)
     Dosage: 10000 INTERNATIONAL UNIT, QD
     Dates: start: 20240424
  20. VON WILLEBRAND FACTOR (RECOMBINANT) [Suspect]
     Active Substance: VON WILLEBRAND FACTOR (RECOMBINANT)
     Dosage: 5000 INTERNATIONAL UNIT, QD
     Dates: start: 20240427
  21. VON WILLEBRAND FACTOR (RECOMBINANT) [Suspect]
     Active Substance: VON WILLEBRAND FACTOR (RECOMBINANT)
     Dosage: 5000 INTERNATIONAL UNIT, QD
     Dates: start: 20240428
  22. VON WILLEBRAND FACTOR (RECOMBINANT) [Suspect]
     Active Substance: VON WILLEBRAND FACTOR (RECOMBINANT)
     Dosage: 5000 INTERNATIONAL UNIT, QD
     Dates: start: 20240429
  23. VON WILLEBRAND FACTOR (RECOMBINANT) [Suspect]
     Active Substance: VON WILLEBRAND FACTOR (RECOMBINANT)
     Dosage: 5000 INTERNATIONAL UNIT, QD
     Dates: start: 20240430
  24. VON WILLEBRAND FACTOR (RECOMBINANT) [Suspect]
     Active Substance: VON WILLEBRAND FACTOR (RECOMBINANT)
     Dosage: 5000 INTERNATIONAL UNIT, QD
     Dates: start: 20240501
  25. VON WILLEBRAND FACTOR (RECOMBINANT) [Suspect]
     Active Substance: VON WILLEBRAND FACTOR (RECOMBINANT)
     Dosage: 5000 INTERNATIONAL UNIT, QD
     Dates: start: 20240502
  26. VON WILLEBRAND FACTOR (RECOMBINANT) [Suspect]
     Active Substance: VON WILLEBRAND FACTOR (RECOMBINANT)
     Dosage: 5000 INTERNATIONAL UNIT, QD
     Dates: start: 20240503
  27. VON WILLEBRAND FACTOR (RECOMBINANT) [Suspect]
     Active Substance: VON WILLEBRAND FACTOR (RECOMBINANT)
     Dosage: 5000 INTERNATIONAL UNIT, QD
     Dates: start: 20240504
  28. VON WILLEBRAND FACTOR (RECOMBINANT) [Suspect]
     Active Substance: VON WILLEBRAND FACTOR (RECOMBINANT)
     Dosage: 5000 INTERNATIONAL UNIT, QD
     Dates: start: 20240505
  29. VON WILLEBRAND FACTOR (RECOMBINANT) [Suspect]
     Active Substance: VON WILLEBRAND FACTOR (RECOMBINANT)
     Dosage: 5000 INTERNATIONAL UNIT, QD
     Dates: start: 20240506
  30. VON WILLEBRAND FACTOR (RECOMBINANT) [Suspect]
     Active Substance: VON WILLEBRAND FACTOR (RECOMBINANT)
     Dosage: 5000 INTERNATIONAL UNIT, QD
     Dates: start: 20240507
  31. VON WILLEBRAND FACTOR (RECOMBINANT) [Suspect]
     Active Substance: VON WILLEBRAND FACTOR (RECOMBINANT)
     Dosage: 5000 INTERNATIONAL UNIT, QD
     Dates: start: 20240508
  32. VON WILLEBRAND FACTOR (RECOMBINANT) [Suspect]
     Active Substance: VON WILLEBRAND FACTOR (RECOMBINANT)
     Dosage: 5000 INTERNATIONAL UNIT, QD
     Dates: start: 20240510
  33. VON WILLEBRAND FACTOR (RECOMBINANT) [Suspect]
     Active Substance: VON WILLEBRAND FACTOR (RECOMBINANT)
     Dosage: 5000 INTERNATIONAL UNIT, QD
     Dates: start: 20240511
  34. VON WILLEBRAND FACTOR (RECOMBINANT) [Suspect]
     Active Substance: VON WILLEBRAND FACTOR (RECOMBINANT)
     Dosage: 5000 INTERNATIONAL UNIT, QD
     Dates: start: 20240512
  35. VON WILLEBRAND FACTOR (RECOMBINANT) [Suspect]
     Active Substance: VON WILLEBRAND FACTOR (RECOMBINANT)
     Dosage: 8000 INTERNATIONAL UNIT, QD
     Dates: start: 20240512
  36. VON WILLEBRAND FACTOR (RECOMBINANT) [Suspect]
     Active Substance: VON WILLEBRAND FACTOR (RECOMBINANT)
     Dosage: 5000 INTERNATIONAL UNIT, QD
     Dates: start: 20240513
  37. TRANEXAMIC ACID [Concomitant]
     Active Substance: TRANEXAMIC ACID
     Indication: Prophylaxis
  38. TRANEXAMIC ACID [Concomitant]
     Active Substance: TRANEXAMIC ACID
     Indication: Epistaxis
  39. TRANEXAMIC ACID [Concomitant]
     Active Substance: TRANEXAMIC ACID
  40. TRANEXAMIC ACID [Concomitant]
     Active Substance: TRANEXAMIC ACID
  41. TRANEXAMIC ACID [Concomitant]
     Active Substance: TRANEXAMIC ACID
  42. TRANEXAMIC ACID [Concomitant]
     Active Substance: TRANEXAMIC ACID
  43. TRANEXAMIC ACID [Concomitant]
     Active Substance: TRANEXAMIC ACID
  44. TRANEXAMIC ACID [Concomitant]
     Active Substance: TRANEXAMIC ACID
  45. TRANEXAMIC ACID [Concomitant]
     Active Substance: TRANEXAMIC ACID
  46. TRANEXAMIC ACID [Concomitant]
     Active Substance: TRANEXAMIC ACID
  47. TRANEXAMIC ACID [Concomitant]
     Active Substance: TRANEXAMIC ACID
  48. TRANEXAMIC ACID [Concomitant]
     Active Substance: TRANEXAMIC ACID
  49. TRANEXAMIC ACID [Concomitant]
     Active Substance: TRANEXAMIC ACID
  50. TRANEXAMIC ACID [Concomitant]
     Active Substance: TRANEXAMIC ACID
  51. TRANEXAMIC ACID [Concomitant]
     Active Substance: TRANEXAMIC ACID
  52. TRANEXAMIC ACID [Concomitant]
     Active Substance: TRANEXAMIC ACID
  53. TRANEXAMIC ACID [Concomitant]
     Active Substance: TRANEXAMIC ACID
  54. TRANEXAMIC ACID [Concomitant]
     Active Substance: TRANEXAMIC ACID
  55. TRANEXAMIC ACID [Concomitant]
     Active Substance: TRANEXAMIC ACID
  56. TRANEXAMIC ACID [Concomitant]
     Active Substance: TRANEXAMIC ACID
  57. TRANEXAMIC ACID [Concomitant]
     Active Substance: TRANEXAMIC ACID
  58. TRANEXAMIC ACID [Concomitant]
     Active Substance: TRANEXAMIC ACID
  59. TRANEXAMIC ACID [Concomitant]
     Active Substance: TRANEXAMIC ACID
  60. TRANEXAMIC ACID [Concomitant]
     Active Substance: TRANEXAMIC ACID
  61. TRANEXAMIC ACID [Concomitant]
     Active Substance: TRANEXAMIC ACID
  62. TRANEXAMIC ACID [Concomitant]
     Active Substance: TRANEXAMIC ACID
  63. TRANEXAMIC ACID [Concomitant]
     Active Substance: TRANEXAMIC ACID
  64. TRANEXAMIC ACID [Concomitant]
     Active Substance: TRANEXAMIC ACID
  65. TRANEXAMIC ACID [Concomitant]
     Active Substance: TRANEXAMIC ACID
  66. TRANEXAMIC ACID [Concomitant]
     Active Substance: TRANEXAMIC ACID
  67. TRANEXAMIC ACID [Concomitant]
     Active Substance: TRANEXAMIC ACID

REACTIONS (2)
  - Deep vein thrombosis [Recovered/Resolved]
  - Bacteraemia [Recovered/Resolved]

NARRATIVE: CASE EVENT DATE: 20240510
